FAERS Safety Report 18143041 (Version 1)
Quarter: 2020Q3

REPORT INFORMATION
  Report Type: Spontaneous
  Country: LB (occurrence: LB)
  Receive Date: 20200813
  Receipt Date: 20200813
  Transmission Date: 20201103
  Serious: Yes (Other)
  Sender: FDA-Public Use
  Company Number: LB-AUROBINDO-AUR-APL-2020-038497

PATIENT

DRUGS (9)
  1. DIGOXIN. [Suspect]
     Active Substance: DIGOXIN
     Dosage: 0.5 MILLIGRAM, ONCE A DAY
     Route: 064
  2. FLECAINIDE [Suspect]
     Active Substance: FLECAINIDE
     Indication: HYDROPS FOETALIS
     Dosage: 150 MILLIGRAM, TWO TIMES A DAY
     Route: 064
  3. SOTALOL. [Suspect]
     Active Substance: SOTALOL
     Indication: HYDROPS FOETALIS
     Dosage: 80 MILLIGRAM, TWO TIMES A DAY
     Route: 064
  4. SOTALOL. [Suspect]
     Active Substance: SOTALOL
     Dosage: 40 MILLIGRAM, ONCE A DAY 2 WEEKS POST DISCHARGE
     Route: 064
  5. DIGOXIN. [Suspect]
     Active Substance: DIGOXIN
     Indication: HYDROPS FOETALIS
     Dosage: UNK
     Route: 064
  6. SOTALOL. [Suspect]
     Active Substance: SOTALOL
     Dosage: 80 MILLIGRAM, TWO TIMES A DAY
     Route: 064
  7. FLECAINIDE [Suspect]
     Active Substance: FLECAINIDE
     Dosage: 200 MILLIGRAM, TWO TIMES A DAY
     Route: 064
  8. FLECAINIDE [Suspect]
     Active Substance: FLECAINIDE
     Dosage: 150 MILLIGRAM, 3 TIMES A DAY
     Route: 064
  9. SOTALOL. [Suspect]
     Active Substance: SOTALOL
     Dosage: 160 MILLIGRAM, TWO TIMES A DAY
     Route: 064

REACTIONS (2)
  - Drug ineffective [Unknown]
  - Foetal exposure during pregnancy [Unknown]
